FAERS Safety Report 9050273 (Version 1)
Quarter: 2013Q1

REPORT INFORMATION
  Report Type: Spontaneous
  Country: US (occurrence: US)
  Receive Date: 20130205
  Receipt Date: 20130205
  Transmission Date: 20140127
  Serious: Yes (Hospitalization, Other)
  Sender: FDA-Public Use
  Company Number: US-PFIZER INC-2013039462

PATIENT
  Age: 60 Year
  Sex: 0

DRUGS (3)
  1. ATORVASTATIN CALCIUM [Suspect]
     Dosage: UNK, AT NIGHT
     Dates: start: 2012
  2. GEMFIBROZIL [Interacting]
     Dosage: UNK, IN THE AFTERNOON
  3. LIPITOR [Suspect]

REACTIONS (8)
  - Drug interaction [Unknown]
  - Bipolar disorder [Unknown]
  - Coma [Unknown]
  - Cholelithiasis [Unknown]
  - Neuropathy peripheral [Unknown]
  - Muscle disorder [Unknown]
  - Bone pain [Unknown]
  - Weight decreased [Unknown]
